FAERS Safety Report 15339936 (Version 1)
Quarter: 2018Q3

REPORT INFORMATION
  Report Type: Report from Study
  Country: US (occurrence: US)
  Receive Date: 20180831
  Receipt Date: 20180831
  Transmission Date: 20181010
  Serious: Yes (Other)
  Sender: FDA-Public Use
  Company Number: US-JNJFOC-20180542908

PATIENT
  Age: 66 Year
  Sex: Male

DRUGS (17)
  1. IMBRUVICA [Suspect]
     Active Substance: IBRUTINIB
     Indication: WALDENSTROM^S MACROGLOBULINAEMIA
     Route: 048
     Dates: start: 20180420
  2. CLONAZEPAM. [Concomitant]
     Active Substance: CLONAZEPAM
  3. LOSARTAN. [Concomitant]
     Active Substance: LOSARTAN
  4. IMBRUVICA [Suspect]
     Active Substance: IBRUTINIB
     Indication: WALDENSTROM^S MACROGLOBULINAEMIA
     Route: 048
     Dates: start: 20180421
  5. IBUPROFEN. [Concomitant]
     Active Substance: IBUPROFEN
  6. IMBRUVICA [Suspect]
     Active Substance: IBRUTINIB
     Indication: WALDENSTROM^S MACROGLOBULINAEMIA
     Route: 048
     Dates: start: 20180219
  7. IMBRUVICA [Suspect]
     Active Substance: IBRUTINIB
     Indication: CEREBRAL DISORDER
     Route: 048
     Dates: start: 20180219
  8. IMBRUVICA [Suspect]
     Active Substance: IBRUTINIB
     Indication: CEREBRAL DISORDER
     Route: 048
     Dates: start: 20180220, end: 20180420
  9. IMBRUVICA [Suspect]
     Active Substance: IBRUTINIB
     Indication: CEREBRAL DISORDER
     Route: 048
     Dates: start: 20180421
  10. METHOCARBAMOL. [Concomitant]
     Active Substance: METHOCARBAMOL
  11. DESVENLAFAXINE. [Concomitant]
     Active Substance: DESVENLAFAXINE
  12. DIAZEPAM. [Concomitant]
     Active Substance: DIAZEPAM
  13. HYDROXYZINE HCL [Concomitant]
     Active Substance: HYDROXYZINE HYDROCHLORIDE
  14. MIRTAZAPINE. [Concomitant]
     Active Substance: MIRTAZAPINE
  15. IMBRUVICA [Suspect]
     Active Substance: IBRUTINIB
     Indication: WALDENSTROM^S MACROGLOBULINAEMIA
     Route: 048
     Dates: start: 20180220, end: 20180420
  16. IMBRUVICA [Suspect]
     Active Substance: IBRUTINIB
     Indication: CEREBRAL DISORDER
     Route: 048
     Dates: start: 20180420
  17. TRAZODONE [Concomitant]
     Active Substance: TRAZODONE HYDROCHLORIDE

REACTIONS (7)
  - Off label use [Unknown]
  - Erythema [Unknown]
  - Product use in unapproved indication [Unknown]
  - Lyme disease [Unknown]
  - Petechiae [Unknown]
  - Rash erythematous [Unknown]
  - Jarisch-Herxheimer reaction [Not Recovered/Not Resolved]

NARRATIVE: CASE EVENT DATE: 20180420
